FAERS Safety Report 9625728 (Version 3)
Quarter: 2015Q4

REPORT INFORMATION
  Report Type: Report from Study
  Country: BR (occurrence: BR)
  Receive Date: 20131016
  Receipt Date: 20151126
  Transmission Date: 20160305
  Serious: Yes (Hospitalization, Other)
  Sender: FDA-Public Use
  Company Number: BR-ABBVIE-13P-020-1138683-00

PATIENT
  Age: 82 Year
  Sex: Female
  Weight: 46 kg

DRUGS (5)
  1. HUMIRA [Suspect]
     Active Substance: ADALIMUMAB
     Indication: RHEUMATOID ARTHRITIS
     Route: 058
     Dates: start: 20130131, end: 20130807
  2. HUMIRA [Suspect]
     Active Substance: ADALIMUMAB
     Route: 058
     Dates: start: 20130822
  3. NIMESULIDE [Concomitant]
     Active Substance: NIMESULIDE
     Indication: PAIN
     Route: 048
  4. METHOTREXATE [Suspect]
     Active Substance: METHOTREXATE
     Indication: RHEUMATOID ARTHRITIS
     Route: 030
  5. UNKNOWN MEDICATION [Concomitant]
     Active Substance: UNSPECIFIED INGREDIENT
     Indication: PRODUCT USED FOR UNKNOWN INDICATION

REACTIONS (8)
  - Pain [Recovered/Resolved]
  - Anaemia [Unknown]
  - Peripheral swelling [Recovered/Resolved]
  - Oedema peripheral [Recovered/Resolved]
  - Arthralgia [Not Recovered/Not Resolved]
  - Rheumatoid arthritis [Recovered/Resolved]
  - Pyrexia [Recovered/Resolved]
  - Synovial rupture [Recovered/Resolved]

NARRATIVE: CASE EVENT DATE: 2013
